FAERS Safety Report 20598810 (Version 3)
Quarter: 2022Q2

REPORT INFORMATION
  Report Type: Report from Study
  Country: ES (occurrence: ES)
  Receive Date: 20220315
  Receipt Date: 20220527
  Transmission Date: 20220721
  Serious: Yes (Hospitalization, Other)
  Sender: FDA-Public Use
  Company Number: ES-JAZZ-2022-ES-005189

PATIENT
  Age: 56 Year
  Sex: Male
  Weight: 74.1 kg

DRUGS (18)
  1. LURBINECTEDIN [Suspect]
     Active Substance: LURBINECTEDIN
     Indication: Colon cancer
     Dosage: 0.9 MG/SQ. METER, D1Q3W
     Route: 042
     Dates: start: 20220117, end: 20220117
  2. LURBINECTEDIN [Suspect]
     Active Substance: LURBINECTEDIN
     Dosage: 3.2 MG/M2
     Route: 042
     Dates: start: 20220207, end: 20220207
  3. ITRACONAZOLE [Suspect]
     Active Substance: ITRACONAZOLE
     Indication: Colon cancer
     Dosage: 200 MILLIGRAM, D-4D8
     Route: 048
     Dates: start: 20220113, end: 20220124
  4. AMOXICILLIN [Concomitant]
     Active Substance: AMOXICILLIN
     Indication: Prophylaxis
     Dosage: UNK
     Dates: start: 20211214
  5. ASPIRIN [Concomitant]
     Active Substance: ASPIRIN
     Indication: Prophylaxis
     Dosage: UNK
     Dates: start: 2021, end: 20220211
  6. NAPROXEN [Concomitant]
     Active Substance: NAPROXEN
     Indication: Prophylaxis
     Dosage: UNK
     Dates: start: 20211214, end: 20220131
  7. ACETAMINOPHEN [Concomitant]
     Active Substance: ACETAMINOPHEN
     Indication: Prophylaxis
     Dosage: UNK
     Dates: start: 2020, end: 20220211
  8. CHLORPHENIRAMINE TANNATE [Concomitant]
     Active Substance: CHLORPHENIRAMINE TANNATE
     Indication: Prophylaxis
     Dosage: UNK
     Dates: start: 2020, end: 20220131
  9. CHLORPHENIRAMINE TANNATE [Concomitant]
     Active Substance: CHLORPHENIRAMINE TANNATE
     Dosage: UNK
     Dates: start: 20200101, end: 20220131
  10. DEXTROMETHORPHAN [Concomitant]
     Active Substance: DEXTROMETHORPHAN
     Indication: Prophylaxis
     Dosage: UNK
     Dates: start: 2020, end: 20220131
  11. CAFFEINE [Concomitant]
     Active Substance: CAFFEINE
     Indication: Prophylaxis
     Dosage: UNK
     Dates: start: 2020, end: 20220131
  12. ASCORBIC ACID [Concomitant]
     Active Substance: ASCORBIC ACID
     Indication: Prophylaxis
     Dosage: UNK
     Dates: start: 2020, end: 20220131
  13. DEXAMETHASONE [Concomitant]
     Active Substance: DEXAMETHASONE
     Indication: Prophylaxis
     Dosage: 8 MILLIGRAM
     Route: 042
     Dates: start: 20220207, end: 20220211
  14. DEXAMETHASONE [Concomitant]
     Active Substance: DEXAMETHASONE
     Dosage: 4 MILLIGRAM, QD
     Route: 042
     Dates: start: 20220212, end: 20220213
  15. DEXAMETHASONE [Concomitant]
     Active Substance: DEXAMETHASONE
     Dosage: 4 MILLIGRAM, BID
     Route: 042
     Dates: start: 20220213, end: 20220216
  16. ONDANSETRON [Concomitant]
     Active Substance: ONDANSETRON
     Indication: Prophylaxis of nausea and vomiting
     Dosage: 8 MILLIGRAM
     Route: 042
     Dates: start: 20220207, end: 20220211
  17. METOCLOPRAMIDE HYDROCHLORIDE [Concomitant]
     Active Substance: METOCLOPRAMIDE HYDROCHLORIDE
     Indication: Product used for unknown indication
     Dosage: UNK
     Dates: end: 20220211
  18. FILGRASTIM [Concomitant]
     Active Substance: FILGRASTIM
     Indication: Neutropenia
     Dosage: 300 MICROGRAM, QD
     Route: 058
     Dates: start: 20220213, end: 20220225

REACTIONS (1)
  - Rhabdomyolysis [Recovered/Resolved]

NARRATIVE: CASE EVENT DATE: 20220212
